FAERS Safety Report 10410095 (Version 1)
Quarter: 2014Q3

REPORT INFORMATION
  Report Type: Spontaneous
  Country: US (occurrence: US)
  Receive Date: 20140826
  Receipt Date: 20140826
  Transmission Date: 20150326
  Serious: No
  Sender: FDA-Public Use
  Company Number: US-PFIZER INC-2014234640

PATIENT
  Age: 59 Year
  Sex: Male
  Weight: 81.63 kg

DRUGS (3)
  1. DYMISTA [Interacting]
     Active Substance: AZELASTINE HYDROCHLORIDE\FLUTICASONE PROPIONATE
     Indication: INFLAMMATION
  2. DYMISTA [Interacting]
     Active Substance: AZELASTINE HYDROCHLORIDE\FLUTICASONE PROPIONATE
     Indication: SINUS CONGESTION
     Dosage: UNK, DAILY
     Route: 045
  3. ADVIL [Suspect]
     Active Substance: IBUPROFEN
     Dosage: 200 MG, AS NEEDED

REACTIONS (2)
  - Drug interaction [Unknown]
  - Throat irritation [Not Recovered/Not Resolved]

NARRATIVE: CASE EVENT DATE: 20140819
